FAERS Safety Report 5339529-0 (Version None)
Quarter: 2007Q2

REPORT INFORMATION
  Report Type: 
  Country: None (occurrence: None)
  Receive Date: 20070404
  Receipt Date: 20060615
  Transmission Date: 20071010
  Serious: Yes (Other)
  Sender: FDA-Public Use
  Company Number: 2005143378

PATIENT
  Sex: Male
  Weight: 56.6996 kg

DRUGS (1)
  1. GEODON [Suspect]
     Indication: BIPOLAR I DISORDER
     Dosage: 120 MG (1 D),

REACTIONS (2)
  - EXTRAPYRAMIDAL DISORDER [None]
  - OCULOGYRATION [None]
